FAERS Safety Report 12417002 (Version 1)
Quarter: 2016Q2

REPORT INFORMATION
  Report Type: Spontaneous
  Country: IE (occurrence: IE)
  Receive Date: 20160530
  Receipt Date: 20160530
  Transmission Date: 20160815
  Serious: Yes (Other)
  Sender: FDA-Public Use
  Company Number: IE-JNJFOC-20150423474

PATIENT
  Age: 69 Year
  Sex: Female

DRUGS (6)
  1. CALCICHEW [Concomitant]
     Active Substance: CALCIUM CARBONATE
     Route: 065
  2. METHOTREXATE [Concomitant]
     Active Substance: METHOTREXATE
     Route: 065
  3. ELTROXIN [Concomitant]
     Active Substance: LEVOTHYROXINE
     Route: 065
  4. FOLIC ACID. [Concomitant]
     Active Substance: FOLIC ACID
     Route: 065
  5. STELARA [Suspect]
     Active Substance: USTEKINUMAB
     Indication: RHEUMATOID ARTHRITIS
     Route: 058
     Dates: start: 20141013
  6. SOTACOR [Concomitant]
     Active Substance: SOTALOL HYDROCHLORIDE
     Route: 065

REACTIONS (1)
  - Rheumatoid arthritis [Unknown]

NARRATIVE: CASE EVENT DATE: 201504
